FAERS Safety Report 11944527 (Version 1)
Quarter: 2016Q1

REPORT INFORMATION
  Report Type: Report from Study
  Country: US (occurrence: US)
  Receive Date: 20160125
  Receipt Date: 20160125
  Transmission Date: 20160526
  Serious: Yes (Hospitalization, Other)
  Sender: FDA-Public Use
  Company Number: PHEH2016US001373

PATIENT
  Sex: Male
  Weight: 74.83 kg

DRUGS (2)
  1. GABAPENTIN. [Concomitant]
     Active Substance: GABAPENTIN
     Indication: NEURALGIA
     Dosage: UNK
     Route: 065
  2. GILENYA [Suspect]
     Active Substance: FINGOLIMOD HYDROCHLORIDE
     Indication: MULTIPLE SCLEROSIS
     Dosage: 0.5 MG, QD
     Route: 048
     Dates: start: 20140328

REACTIONS (9)
  - Central nervous system lesion [Unknown]
  - Arthralgia [Not Recovered/Not Resolved]
  - Blindness [Unknown]
  - Eye disorder [Unknown]
  - Dysgraphia [Unknown]
  - Eye infection [Unknown]
  - Eye haemorrhage [Unknown]
  - Multiple sclerosis relapse [Unknown]
  - Burning sensation [Unknown]
